FAERS Safety Report 9424658 (Version 2)
Quarter: 2013Q3

REPORT INFORMATION
  Report Type: Spontaneous
  Country: FR (occurrence: None)
  Receive Date: 20130725
  Receipt Date: 20130807
  Transmission Date: 20140515
  Serious: Yes (Death, Hospitalization)
  Sender: FDA-Public Use
  Company Number: 2013MPI00431

PATIENT
  Age: 76 Year
  Sex: Female

DRUGS (13)
  1. BRENTUXIMAB VEDOTIN (BRENTUXIMAB VEDOTIN) INJECTION [Suspect]
     Indication: HODGKIN^S DISEASE
     Route: 042
     Dates: start: 20121113, end: 20121113
  2. LODOZ (BISOPROLOL FUMARATE, HYDROCHLOROTHIAZIDE) [Concomitant]
  3. SOTALEX (SOTALOL HYDROCHLORIDE) [Concomitant]
  4. LEVOTHYROX (LEVOTHYROXINE SODIUM) INFUSION [Concomitant]
  5. TOPALGIC (TRAMADOL HYDROCHLORIDE) [Concomitant]
  6. KARDEGIC (ACETYLSALICYLATE LYSINE, ACETYLSALCYCLIC ACID) [Concomitant]
  7. STABLON (TIANEPTINE) [Concomitant]
  8. AERIUS (DESLORATADINE) [Concomitant]
  9. HEXAQUINE (MELALEUCA VIRIDIFLORA OIL, QUININE BENZOATE, THIAMINE HYDROCHLORIDE) [Concomitant]
  10. FENOFIBRATE (FENOFIBRATE) (FENOFIBRATE) [Concomitant]
  11. SOLUMEDROL (METHYLPREDNISOLONE SODIUM SUCCINATE) [Concomitant]
  12. POLARAMINE (CHLORPHENAMINE TABLETS) [Concomitant]
  13. PERFALGAN [Concomitant]

REACTIONS (14)
  - Agranulocytosis [None]
  - Septic shock [None]
  - Hypertensive crisis [None]
  - Pulmonary oedema [None]
  - Nervous system disorder [None]
  - Multi-organ failure [None]
  - Anuria [None]
  - Respiratory distress [None]
  - Gamma-glutamyltransferase increased [None]
  - Blood lactate dehydrogenase increased [None]
  - Lymphoedema [None]
  - Medical device complication [None]
  - Erysipelas [None]
  - Escherichia test positive [None]
